FAERS Safety Report 7857916-3 (Version None)
Quarter: 2011Q4

REPORT INFORMATION
  Report Type: 
  Country: None (occurrence: None)
  Receive Date: 20111027
  Receipt Date: 20110214
  Transmission Date: 20120403
  Serious: No
  Sender: FDA-Public Use
  Company Number: US-BAYER-2011-014973

PATIENT
  Sex: Female
  Weight: 68 kg

DRUGS (3)
  1. LISINOPRIL [Concomitant]
     Dosage: 1 UNK, UNK
     Route: 048
  2. ZYRTEC [Concomitant]
     Dosage: UNK
     Route: 048
  3. ALEVE (CAPLET) [Suspect]
     Indication: BACK PAIN
     Dosage: 1 DF, QD
     Route: 048
     Dates: start: 20110211, end: 20110212

REACTIONS (1)
  - RASH [None]
